FAERS Safety Report 8598409-8 (Version None)
Quarter: 2012Q3

REPORT INFORMATION
  Report Type: 
  Country: None (occurrence: None)
  Receive Date: 20120816
  Receipt Date: 20120814
  Transmission Date: 20120928
  Serious: Yes (Other)
  Sender: FDA-Public Use
  Company Number: US-SHIRE-ALL1-2012-03855

PATIENT
  Sex: Male

DRUGS (1)
  1. VYVANSE [Suspect]
     Indication: ATTENTION DEFICIT/HYPERACTIVITY DISORDER
     Dosage: UNK, 1X/DAY:QD (HALF OF 70 MG CASPULE CONTENT)
     Route: 048
     Dates: start: 20120201

REACTIONS (5)
  - ASTHENIA [None]
  - PRODUCT QUALITY ISSUE [None]
  - DEPRESSION [None]
  - WRONG TECHNIQUE IN DRUG USAGE PROCESS [None]
  - ATTENTION DEFICIT/HYPERACTIVITY DISORDER [None]
